FAERS Safety Report 24651175 (Version 1)
Quarter: 2024Q4

REPORT INFORMATION
  Report Type: Spontaneous
  Country: US (occurrence: US)
  Receive Date: 20241122
  Receipt Date: 20241122
  Transmission Date: 20250114
  Serious: Yes (Hospitalization, Other)
  Sender: SANDOZ
  Company Number: US-SANDOZ-SDZ2024US096489

PATIENT
  Age: 49 Year
  Sex: Female

DRUGS (12)
  1. BRENTUXIMAB [Suspect]
     Active Substance: BRENTUXIMAB
     Indication: Gastrointestinal disorder
     Dosage: 2 DOSE, 3 WEEKS APART
     Route: 065
  2. BRENTUXIMAB [Suspect]
     Active Substance: BRENTUXIMAB
     Indication: Hodgkin^s disease
  3. BRENTUXIMAB [Suspect]
     Active Substance: BRENTUXIMAB
     Indication: Mesenteric lymphadenitis
  4. CARBOPLATIN [Suspect]
     Active Substance: CARBOPLATIN
     Indication: Gastrointestinal disorder
     Route: 065
  5. CARBOPLATIN [Suspect]
     Active Substance: CARBOPLATIN
     Indication: Hodgkin^s disease
  6. CARBOPLATIN [Suspect]
     Active Substance: CARBOPLATIN
     Indication: Mesenteric lymphadenitis
  7. ETOPOSIDE [Suspect]
     Active Substance: ETOPOSIDE
     Indication: Gastrointestinal disorder
     Route: 065
  8. ETOPOSIDE [Suspect]
     Active Substance: ETOPOSIDE
     Indication: Hodgkin^s disease
  9. ETOPOSIDE [Suspect]
     Active Substance: ETOPOSIDE
     Indication: Mesenteric lymphadenitis
  10. IFOSFAMIDE [Suspect]
     Active Substance: IFOSFAMIDE
     Indication: Gastrointestinal disorder
     Route: 065
  11. IFOSFAMIDE [Suspect]
     Active Substance: IFOSFAMIDE
     Indication: Hodgkin^s disease
  12. IFOSFAMIDE [Suspect]
     Active Substance: IFOSFAMIDE
     Indication: Mesenteric lymphadenitis

REACTIONS (6)
  - Tubulointerstitial nephritis [Unknown]
  - Pancytopenia [Unknown]
  - Acute kidney injury [Unknown]
  - Nausea [Unknown]
  - Vomiting [Unknown]
  - Myelosuppression [Unknown]
